FAERS Safety Report 12198020 (Version 1)
Quarter: 2016Q1

REPORT INFORMATION
  Report Type: Spontaneous
  Country: US (occurrence: US)
  Receive Date: 20160322
  Receipt Date: 20160322
  Transmission Date: 20160526
  Serious: Yes (Other)
  Sender: FDA-Public Use
  Company Number: US-JNJFOC-20160215112

PATIENT
  Age: 5 Decade
  Sex: Female

DRUGS (2)
  1. KEPPRA [Suspect]
     Active Substance: LEVETIRACETAM
     Indication: PRODUCT USED FOR UNKNOWN INDICATION
     Route: 065
  2. TOPAMAX [Suspect]
     Active Substance: TOPIRAMATE
     Indication: PRODUCT USED FOR UNKNOWN INDICATION
     Route: 048

REACTIONS (7)
  - Amnesia [Unknown]
  - Balance disorder [Unknown]
  - Disturbance in attention [Unknown]
  - Dyspnoea [Unknown]
  - Seizure [Not Recovered/Not Resolved]
  - Cognitive disorder [Unknown]
  - Fatigue [Unknown]
